FAERS Safety Report 11350048 (Version 2)
Quarter: 2015Q3

REPORT INFORMATION
  Report Type: Spontaneous
  Country: IT (occurrence: IT)
  Receive Date: 20150807
  Receipt Date: 20150810
  Transmission Date: 20151125
  Serious: Yes (Life-Threatening)
  Sender: FDA-Public Use
  Company Number: IT-TEVA-583251ACC

PATIENT
  Age: 41 Year
  Sex: Female

DRUGS (7)
  1. DEXAMETHASONE. [Concomitant]
     Active Substance: DEXAMETHASONE
     Indication: PREMEDICATION
     Dosage: 16 MG
     Route: 042
  2. FLUOROURACILE TEVA - 5 G/100 ML SOLUZIONE PER INFUSIONE [Suspect]
     Active Substance: FLUOROURACIL
     Indication: COLON CANCER
     Dosage: 708 MG TOTAL
     Route: 042
     Dates: start: 20150706, end: 20150706
  3. OXALIPLATINO TEVA - 5 MG/ML CONCENTRATO PER SOLUZIONE PER INFUSIONE [Suspect]
     Active Substance: OXALIPLATIN
     Indication: COLON CANCER
     Dosage: 150 MG TOTAL,CONCENTRATE FOR SOLUTION FOR INFUSION
     Route: 042
     Dates: start: 20150706, end: 20150706
  4. LEVOFOLINIC ACID [Concomitant]
     Active Substance: LEVOLEUCOVORIN
     Indication: PREMEDICATION
     Route: 042
  5. TRIMETON - 10 MG/1 ML SOLUZIONE INIETTABILE - BAYER S.P.A. [Concomitant]
     Indication: PREMEDICATION
  6. ONDANSETRON HYDROCHLORIDE. [Concomitant]
     Active Substance: ONDANSETRON HYDROCHLORIDE
     Indication: PREMEDICATION
     Dosage: 8 MG
     Route: 042
  7. FLUOROURACILE TEVA - TEVA ITALIA S.R.L. [Suspect]
     Active Substance: FLUOROURACIL
     Indication: COLON CANCER
     Dosage: 2.12 G TOTAL
     Route: 042
     Dates: start: 20150706, end: 20150706

REACTIONS (5)
  - Vomiting [Recovering/Resolving]
  - Chest pain [Recovering/Resolving]
  - Hypovolaemic shock [Recovering/Resolving]
  - Oxygen saturation decreased [Recovering/Resolving]
  - Hypotension [Recovering/Resolving]

NARRATIVE: CASE EVENT DATE: 20150708
